FAERS Safety Report 6004264-2 (Version None)
Quarter: 2008Q4

REPORT INFORMATION
  Report Type: 
  Country: None (occurrence: None)
  Receive Date: 20081215
  Receipt Date: 20081215
  Transmission Date: 20090506
  Serious: Yes (Hospitalization)
  Sender: FDA-Public Use
  Company Number: None

PATIENT
  Age: 66 Year
  Sex: Male
  Weight: 86 kg

DRUGS (2)
  1. OXYCODONE [Suspect]
     Indication: ROTATOR CUFF SYNDROME
  2. HYDROMORPHONE HCL [Suspect]

REACTIONS (7)
  - ABDOMINAL DISTENSION [None]
  - EYELID OEDEMA [None]
  - JOINT SWELLING [None]
  - OEDEMA PERIPHERAL [None]
  - PRURITUS [None]
  - SWELLING FACE [None]
  - URTICARIA [None]
